FAERS Safety Report 11693645 (Version 2)
Quarter: 2016Q3

REPORT INFORMATION
  Report Type: Report from Study
  Country: JP (occurrence: JP)
  Receive Date: 20151103
  Receipt Date: 20160708
  Transmission Date: 20161109
  Serious: Yes (Other)
  Sender: FDA-Public Use
  Company Number: JP-009507513-1309JPN009317

PATIENT
  Age: 44 Year
  Sex: Male

DRUGS (10)
  1. PEGINTRON [Suspect]
     Active Substance: PEGINTERFERON ALFA-2B
     Dosage: 40 MICROGRAM, 1/10D
     Route: 058
     Dates: start: 20131025
  2. URSO [Concomitant]
     Active Substance: URSODIOL
     Indication: LIVER FUNCTION TEST INCREASED
  3. EPZICOM [Concomitant]
     Active Substance: ABACAVIR SULFATE\LAMIVUDINE
     Indication: HIV INFECTION
     Dosage: 1 DF, DIVIDED DOSE FREQUENCY UNKNOWN
     Route: 048
     Dates: start: 20061030
  4. URSO [Concomitant]
     Active Substance: URSODIOL
     Indication: HEPATITIS C
     Dosage: 200 MG, 3/1 DAY. FORMULATION POR
     Route: 048
     Dates: end: 20130422
  5. PEGINTRON [Suspect]
     Active Substance: PEGINTERFERON ALFA-2B
     Indication: THROMBOCYTOPENIA
     Dosage: 40 MICROGRAM, QW
     Route: 058
     Dates: start: 20130111, end: 20130902
  6. GASTER [Concomitant]
     Active Substance: FAMOTIDINE
     Indication: EROSIVE DUODENITIS
     Dosage: 10 MG, 2/1 DAY
     Route: 065
     Dates: end: 20130310
  7. PEGINTRON [Suspect]
     Active Substance: PEGINTERFERON ALFA-2B
     Indication: HEPATITIS C
     Dosage: 30 MICROGRAM, 1/1WEEK
     Route: 058
     Dates: end: 20130110
  8. PEGINTRON [Suspect]
     Active Substance: PEGINTERFERON ALFA-2B
     Indication: LIVER FUNCTION TEST INCREASED
     Dosage: 30 MICROGRAM, 1/10D
     Route: 058
     Dates: start: 20130913, end: 20131015
  9. REBETOL [Suspect]
     Active Substance: RIBAVIRIN
     Indication: HEPATITIS C
     Dosage: 600 MG, 2/1 DAY
     Route: 048
     Dates: start: 20120604, end: 20140401
  10. ISENTRESS [Suspect]
     Active Substance: RALTEGRAVIR POTASSIUM
     Indication: HIV INFECTION
     Dosage: 800 MG, QD, DIVIDED DOSE FREQUENCY UNKNOWN
     Route: 048
     Dates: start: 20090202

REACTIONS (5)
  - Liver function test abnormal [Recovering/Resolving]
  - Blood uric acid increased [Not Recovered/Not Resolved]
  - Blood bilirubin increased [Not Recovered/Not Resolved]
  - White blood cell count decreased [Not Recovered/Not Resolved]
  - Hypertension [Recovering/Resolving]

NARRATIVE: CASE EVENT DATE: 20120409
